FAERS Safety Report 5633458-0 (Version None)
Quarter: 2008Q1

REPORT INFORMATION
  Report Type: 
  Country: None (occurrence: None)
  Receive Date: 20080221
  Receipt Date: 20080212
  Transmission Date: 20080703
  Serious: Yes (Hospitalization)
  Sender: FDA-Public Use
  Company Number: US-ELI_LILLY_AND_COMPANY-US200802002558

PATIENT
  Age: 57 Year
  Sex: Female

DRUGS (10)
  1. CYMBALTA [Suspect]
     Dosage: 60 MG, UNK
     Route: 048
     Dates: end: 20080201
  2. FLUCONAZOLE [Concomitant]
  3. FLAGYL [Concomitant]
  4. INSULIN [Concomitant]
  5. FOSAMAX [Concomitant]
  6. OXYCONTIN [Concomitant]
  7. CALCITRIOL [Concomitant]
  8. HYDROCORTISONE                     /00028601/ [Concomitant]
     Route: 042
  9. PROTONIX [Concomitant]
  10. TACROLIMUS [Concomitant]

REACTIONS (1)
  - SMALL INTESTINAL OBSTRUCTION [None]
